FAERS Safety Report 11791447 (Version 2)
Quarter: 2016Q1

REPORT INFORMATION
  Report Type: Report from Study
  Country: JP (occurrence: JP)
  Receive Date: 20151201
  Receipt Date: 20160210
  Transmission Date: 20160525
  Serious: Yes (Hospitalization)
  Sender: FDA-Public Use
  Company Number: JP-BAYER-2015-472912

PATIENT
  Age: 73 Year
  Sex: Male

DRUGS (4)
  1. NEXIUM [Concomitant]
     Active Substance: ESOMEPRAZOLE MAGNESIUM
     Indication: GASTRITIS PROPHYLAXIS
     Dosage: DAILY DOSE 20 MG
     Route: 048
     Dates: start: 20151105
  2. REGORAFENIB [Suspect]
     Active Substance: REGORAFENIB
     Indication: COLON CANCER
     Dosage: 160 MG, QD
     Route: 048
     Dates: start: 20151105, end: 20151118
  3. LEVOFLOXACIN. [Concomitant]
     Active Substance: LEVOFLOXACIN
     Indication: PYREXIA
     Dosage: DAILY DOSE 500 MG
     Route: 048
     Dates: start: 20151117, end: 20151118
  4. CALONAL [Concomitant]
     Active Substance: ACETAMINOPHEN
     Indication: PYREXIA
     Dosage: DAILY DOSE 300 MG
     Route: 048
     Dates: start: 20151117, end: 20151118

REACTIONS (5)
  - Prerenal failure [Recovering/Resolving]
  - Dehydration [Recovered/Resolved]
  - Pyrexia [Recovered/Resolved]
  - Liver function test increased [Recovered/Resolved]
  - Hypertension [None]

NARRATIVE: CASE EVENT DATE: 20151112
